FAERS Safety Report 7938330-9 (Version None)
Quarter: 2011Q4

REPORT INFORMATION
  Report Type: 
  Country: None (occurrence: None)
  Receive Date: 20111123
  Receipt Date: 20111115
  Transmission Date: 20120403
  Serious: Yes (Hospitalization)
  Sender: FDA-Public Use
  Company Number: US-PFIZER INC-2011271153

PATIENT
  Sex: Male
  Weight: 94.7 kg

DRUGS (4)
  1. GEMCITABINE [Suspect]
     Indication: METASTATIC RENAL CELL CARCINOMA
     Dosage: 1000 MG/M2, CYCLIC, EVERY 2 WEEKS, 1 WEEK OFF
     Route: 042
     Dates: start: 20111101, end: 20111101
  2. SUNITINIB MALATE [Suspect]
     Indication: METASTATIC RENAL CELL CARCINOMA
     Dosage: 37.5 MG, 1X/DAY, 2 WEEKS ON/1 WEEK OFF
     Route: 048
     Dates: start: 20111101, end: 20111103
  3. COMPAZINE [Concomitant]
  4. LORAZEPAM [Concomitant]

REACTIONS (1)
  - MENINGITIS [None]
